FAERS Safety Report 24422071 (Version 2)
Quarter: 2024Q4

REPORT INFORMATION
  Report Type: Other
  Country: LK (occurrence: LK)
  Receive Date: 20241010
  Receipt Date: 20241023
  Transmission Date: 20250115
  Serious: Yes (Death)
  Sender: ALVOGEN
  Company Number: LK-ALVOGEN-2024095617

PATIENT
  Sex: Male

DRUGS (1)
  1. NIFEDIPINE [Suspect]
     Active Substance: NIFEDIPINE
     Indication: Product used for unknown indication

REACTIONS (7)
  - Toxicity to various agents [Fatal]
  - Overdose [Fatal]
  - Hyperglycaemia [Fatal]
  - Trismus [Fatal]
  - Vomiting [Fatal]
  - Dizziness [Fatal]
  - Sinus tachycardia [Fatal]
